FAERS Safety Report 22070958 (Version 1)
Quarter: 2023Q1

REPORT INFORMATION
  Report Type: Spontaneous
  Country: GR (occurrence: GR)
  Receive Date: 20230307
  Receipt Date: 20230307
  Transmission Date: 20230417
  Serious: Yes (Hospitalization)
  Sender: FDA-Public Use
  Company Number: GR-BAYER-2023A023999

PATIENT
  Age: 63 Year
  Sex: Female

DRUGS (4)
  1. NEXAVAR [Suspect]
     Active Substance: SORAFENIB
     Indication: Thyroid cancer
     Dosage: 800 MG
  2. NEXAVAR [Suspect]
     Active Substance: SORAFENIB
     Indication: Metastases to lung
  3. NEXAVAR [Suspect]
     Active Substance: SORAFENIB
     Indication: Metastases to lymph nodes
  4. NEXAVAR [Suspect]
     Active Substance: SORAFENIB
     Indication: Metastases to bone

REACTIONS (1)
  - COVID-19 [None]
